FAERS Safety Report 18940384 (Version 1)
Quarter: 2021Q1

REPORT INFORMATION
  Report Type: Spontaneous
  Country: US (occurrence: US)
  Receive Date: 20210225
  Receipt Date: 20210225
  Transmission Date: 20210420
  Serious: Yes (Hospitalization)
  Sender: FDA-Public Use
  Company Number: None

PATIENT
  Age: 29 Year
  Sex: Male
  Weight: 70.3 kg

DRUGS (8)
  1. NEPHROCAPS [Concomitant]
     Active Substance: ASCORBIC ACID\BIOTIN\CYANOCOBALAMIN\FOLIC ACID\NIACIN\PANTOTHENIC ACID\PYRIDOXINE\RIBOFLAVIN\THIAMINE
  2. HUMIRA [Suspect]
     Active Substance: ADALIMUMAB
  3. BUSPIRONE [Concomitant]
     Active Substance: BUSPIRONE HYDROCHLORIDE
  4. MULTIPLE VITAMINS?MINERALS [Concomitant]
  5. ATOMOXETINE HCL [Concomitant]
     Active Substance: ATOMOXETINE HYDROCHLORIDE
  6. VILAZODONE HCL [Concomitant]
  7. TADALAFIL. [Concomitant]
     Active Substance: TADALAFIL
  8. SEVELAMER CARBONATE. [Concomitant]
     Active Substance: SEVELAMER CARBONATE

REACTIONS (8)
  - Dialysis [None]
  - Proctitis [None]
  - Condition aggravated [None]
  - Fatigue [None]
  - Abdominal pain [None]
  - Constipation [None]
  - Colitis [None]
  - Decreased appetite [None]

NARRATIVE: CASE EVENT DATE: 20190327
